FAERS Safety Report 9285638 (Version 2)
Quarter: 2013Q2

REPORT INFORMATION
  Report Type: Spontaneous
  Country: NL (occurrence: NL)
  Receive Date: 20130513
  Receipt Date: 20130603
  Transmission Date: 20140414
  Serious: Yes (Other)
  Sender: FDA-Public Use
  Company Number: NL-SANOFI-AVENTIS-2013SA046947

PATIENT
  Age: 67 Year
  Sex: Male

DRUGS (6)
  1. LANTUS SOLOSTAR [Suspect]
     Indication: TYPE 1 DIABETES MELLITUS
     Route: 058
     Dates: start: 2011
  2. SOLOSTAR [Suspect]
     Indication: DEVICE THERAPY
     Dates: start: 2011
  3. METFORMIN [Concomitant]
     Indication: TYPE 1 DIABETES MELLITUS
     Dosage: STRENGTH:500MG
     Route: 048
     Dates: start: 1999
  4. ENALAPRIL MALEATE [Concomitant]
     Indication: HYPERTENSION
     Dosage: STRENGTH:10 MG
     Route: 048
     Dates: start: 1999
  5. SIMVASTATIN [Concomitant]
     Indication: HYPERCHOLESTEROLAEMIA
     Dosage: STRENGTH:40MG
     Route: 048
     Dates: start: 1999
  6. TAMSULOSIN [Concomitant]
     Indication: BENIGN PROSTATIC HYPERPLASIA
     Dosage: STRENGTH: 0.4MG
     Route: 048
     Dates: start: 2010

REACTIONS (1)
  - Partial seizures [Not Recovered/Not Resolved]
